APPROVED DRUG PRODUCT: METOPROLOL TARTRATE AND HYDROCHLOROTHIAZIDE
Active Ingredient: HYDROCHLOROTHIAZIDE; METOPROLOL TARTRATE
Strength: 25MG;100MG
Dosage Form/Route: TABLET;ORAL
Application: A090654 | Product #002
Applicant: SUN PHARMACEUTICAL INDUSTRIES LTD
Approved: Jan 19, 2012 | RLD: No | RS: No | Type: DISCN